FAERS Safety Report 8328490-2 (Version None)
Quarter: 2012Q2

REPORT INFORMATION
  Report Type: 
  Country: None (occurrence: None)
  Receive Date: 20120502
  Receipt Date: 20120424
  Transmission Date: 20120825
  Serious: Yes (Hospitalization)
  Sender: FDA-Public Use
  Company Number: US-BAYER-2011-112587

PATIENT
  Age: 35 Year
  Sex: Female
  Weight: 77.098 kg

DRUGS (5)
  1. YASMIN [Suspect]
     Indication: CONTRACEPTION
     Dosage: UNK
     Dates: start: 20060213, end: 20091225
  2. YASMIN [Suspect]
     Indication: PREMENSTRUAL SYNDROME
  3. ALLEGRA [Concomitant]
     Indication: RHINITIS ALLERGIC
     Dosage: 60 MG, UNK
     Route: 048
     Dates: start: 20070905, end: 20091226
  4. FLUTICASONE PROPIONATE [Concomitant]
     Indication: RHINITIS ALLERGIC
     Dosage: 2 SPRAYS EACH NOSTRIL DAILYUNK
     Route: 045
     Dates: start: 20070905, end: 20091226
  5. YASMIN [Suspect]

REACTIONS (6)
  - DEEP VEIN THROMBOSIS [None]
  - LUNG DISORDER [None]
  - PLEURITIC PAIN [None]
  - DYSPNOEA [None]
  - PULMONARY EMBOLISM [None]
  - PLEURAL EFFUSION [None]
